FAERS Safety Report 25700338 (Version 3)
Quarter: 2025Q3

REPORT INFORMATION
  Report Type: Spontaneous
  Country: US (occurrence: US)
  Receive Date: 20250819
  Receipt Date: 20250919
  Transmission Date: 20251021
  Serious: Yes (Hospitalization)
  Sender: MALLINCKRODT
  Company Number: US-MALLINCKRODT-MNK202505100

PATIENT
  Age: 51 Year
  Sex: Female
  Weight: 146 kg

DRUGS (1)
  1. CORTICOTROPIN [Suspect]
     Active Substance: CORTICOTROPIN
     Indication: Renal disorder
     Route: 058
     Dates: start: 20250814

REACTIONS (10)
  - Blood pressure increased [Unknown]
  - Back pain [Unknown]
  - Reading disorder [Unknown]
  - Speech disorder [Unknown]
  - Dysgraphia [Unknown]
  - Nausea [Unknown]
  - Insomnia [Unknown]
  - Hyperphagia [Unknown]
  - Swelling [Unknown]
  - Headache [Unknown]

NARRATIVE: CASE EVENT DATE: 20250101
